FAERS Safety Report 13615140 (Version 2)
Quarter: 2017Q2

REPORT INFORMATION
  Report Type: Report from Study
  Country: US (occurrence: US)
  Receive Date: 20170606
  Receipt Date: 20170608
  Transmission Date: 20170830
  Serious: Yes (Death, Other)
  Sender: FDA-Public Use
  Company Number: US-JNJFOC-20170524378

PATIENT
  Age: 67 Year
  Sex: Female

DRUGS (10)
  1. ESCITALOPRAM [Concomitant]
     Active Substance: ESCITALOPRAM OXALATE
     Route: 048
  2. LORAZEPAM. [Concomitant]
     Active Substance: LORAZEPAM
     Indication: ANXIETY
     Dosage: 1 MG, EVERY 8 HOURS AS NEEDED
     Route: 048
  3. CYTARABINE. [Suspect]
     Active Substance: CYTARABINE
     Indication: CHRONIC LYMPHOCYTIC LEUKAEMIA
     Route: 037
     Dates: end: 2017
  4. HYDROCODONE/ACETAMINOPHEN [Concomitant]
     Active Substance: ACETAMINOPHEN\HYDROCODONE
     Indication: PAIN
     Route: 048
  5. NITROFURANTOIN. [Concomitant]
     Active Substance: NITROFURANTOIN
     Route: 048
  6. IMBRUVICA [Suspect]
     Active Substance: IBRUTINIB
     Indication: CHRONIC LYMPHOCYTIC LEUKAEMIA
     Route: 048
  7. RITUXAN [Suspect]
     Active Substance: RITUXIMAB
     Indication: CHRONIC LYMPHOCYTIC LEUKAEMIA
     Route: 037
  8. DEXAMETHASONE. [Concomitant]
     Active Substance: DEXAMETHASONE
     Dosage: 4 MG, BID
     Route: 048
  9. HYDROCODONE/ACETAMINOPHEN [Concomitant]
     Active Substance: ACETAMINOPHEN\HYDROCODONE
     Indication: PAIN
     Dosage: 325 MG, UNK, AS NEEDED
     Route: 048
  10. ACYCLOVIR. [Concomitant]
     Active Substance: ACYCLOVIR
     Dosage: 800 MG, QD, BEFORE BREAKFAST

REACTIONS (23)
  - Haemolytic anaemia [Unknown]
  - Neuropathy peripheral [Unknown]
  - Fatigue [Unknown]
  - Rash pustular [Unknown]
  - Back pain [Unknown]
  - Nausea [Unknown]
  - Feeling abnormal [Unknown]
  - Ecchymosis [Unknown]
  - Urinary tract infection [Unknown]
  - Constipation [Unknown]
  - Vomiting [Unknown]
  - Seizure [Unknown]
  - Thirst [Unknown]
  - Asthenia [Unknown]
  - Hot flush [Unknown]
  - Fall [Unknown]
  - Decreased appetite [Unknown]
  - Disease progression [Fatal]
  - Cold sweat [Unknown]
  - Hypersomnia [Unknown]
  - Dysgeusia [Unknown]
  - Hyperhidrosis [Unknown]
  - Performance status decreased [Unknown]

NARRATIVE: CASE EVENT DATE: 2017
